FAERS Safety Report 4359295-5 (Version None)
Quarter: 2004Q2

REPORT INFORMATION
  Report Type: 
  Country: None (occurrence: None)
  Receive Date: 20040512
  Receipt Date: 20040504
  Transmission Date: 20050107
  Serious: Yes (Hospitalization)
  Sender: FDA-Public Use
  Company Number: GBR-2004-0001035

PATIENT
  Age: 43 Year
  Sex: Male

DRUGS (3)
  1. SEVREDOL          (MORPHINE SULFATE) IR TABLET [Suspect]
     Indication: PAIN
     Dosage: 1 UNIT, PRN, ORAL
     Route: 048
     Dates: start: 20040306, end: 20040308
  2. MORPHINE SULFATE [Suspect]
     Indication: PAIN
     Dosage: 60 MG, DAILY, ORAL
     Route: 048
     Dates: start: 20040306, end: 20040308
  3. KETOPROFEN [Concomitant]

REACTIONS (1)
  - ILEUS PARALYTIC [None]
